FAERS Safety Report 7675603-1 (Version None)
Quarter: 2011Q3

REPORT INFORMATION
  Report Type: 
  Country: None (occurrence: None)
  Receive Date: 20110810
  Receipt Date: 20110803
  Transmission Date: 20111222
  Serious: Yes (Hospitalization)
  Sender: FDA-Public Use
  Company Number: FR-PFIZER INC-2011176825

PATIENT
  Age: 62 Year
  Sex: Female

DRUGS (4)
  1. CYCLOSERINE ^ROCHE^ [Suspect]
     Indication: TUBERCULOSIS
     Dosage: 250 MG, 2X/DAY
     Route: 048
     Dates: start: 20110122
  2. ADIAZINE [Suspect]
     Indication: TUBERCULOSIS
     Dosage: UNK
     Route: 048
     Dates: start: 20110322
  3. ZYVOX [Suspect]
     Indication: TUBERCULOSIS
     Dosage: 600 MG, 2X/DAY
     Route: 048
     Dates: start: 20110122, end: 20110629
  4. MYAMBUTOL [Suspect]
     Indication: TUBERCULOSIS
     Dosage: 400 MG, 2X/DAY
     Route: 048
     Dates: start: 20110122

REACTIONS (1)
  - CARDIAC FAILURE [None]
